FAERS Safety Report 9691593 (Version 1)
Quarter: 2013Q4

REPORT INFORMATION
  Report Type: Report from Study
  Country: US (occurrence: US)
  Receive Date: 20131115
  Receipt Date: 20131115
  Transmission Date: 20140711
  Serious: Yes (Hospitalization, Other)
  Sender: FDA-Public Use
  Company Number: US-ABBVIE-13P-163-1167794-00

PATIENT
  Age: 58 Year
  Sex: Male
  Weight: 74.91 kg

DRUGS (5)
  1. HUMIRA [Suspect]
     Indication: RHEUMATOID ARTHRITIS
     Dates: start: 2011, end: 20131001
  2. BENAZAPRIL [Concomitant]
     Indication: HYPERTENSION
     Dosage: DAILY
  3. MELOXICAM [Concomitant]
     Indication: RHEUMATOID ARTHRITIS
  4. CALCIUM WITH VITAMIN D [Concomitant]
     Indication: VITAMIN SUPPLEMENTATION
     Dosage: DAILY
  5. GENERIC STOOL SOFTNER [Concomitant]
     Indication: PRODUCT USED FOR UNKNOWN INDICATION

REACTIONS (2)
  - Prostatic specific antigen increased [Recovered/Resolved]
  - Prostate cancer [Unknown]
